FAERS Safety Report 25454242 (Version 1)
Quarter: 2025Q2

REPORT INFORMATION
  Report Type: Spontaneous
  Country: GB (occurrence: GB)
  Receive Date: 20250619
  Receipt Date: 20250619
  Transmission Date: 20250717
  Serious: Yes (Disabling, Other)
  Sender: AUROBINDO
  Company Number: GB-MHRA-MED-202506041829352510-FMHZT

PATIENT
  Age: 22 Year
  Weight: 72 kg

DRUGS (1)
  1. NITROFURANTOIN [Suspect]
     Active Substance: NITROFURANTOIN
     Indication: Urinary tract infection
     Dosage: 1 DOSAGE FORM, FOUR TIMES/DAY [ONE TAKEN 4 TIMES DAILY FOR 3 DAYS, THEN 1 TABLET AFTER INTERCOURSE A
     Route: 065
     Dates: start: 20201223, end: 20250509

REACTIONS (1)
  - Deafness unilateral [Not Recovered/Not Resolved]

NARRATIVE: CASE EVENT DATE: 20250413
